FAERS Safety Report 5176690-5 (Version None)
Quarter: 2006Q4

REPORT INFORMATION
  Report Type: 
  Country: None (occurrence: None)
  Receive Date: 20061212
  Receipt Date: 20061212
  Transmission Date: 20070319
  Serious: Yes (Life-Threatening)
  Sender: FDA-Public Use
  Company Number: None

PATIENT
  Age: 7 Month
  Sex: Female
  Weight: 9.2 kg

DRUGS (1)
  1. WINRHO [Suspect]
     Indication: THROMBOCYTOPENIA
     Dosage: 225 MCG  X1  IV
     Route: 042
     Dates: start: 20061206

REACTIONS (3)
  - CYANOSIS [None]
  - FEELING COLD [None]
  - VOMITING [None]
